FAERS Safety Report 24882066 (Version 2)
Quarter: 2025Q2

REPORT INFORMATION
  Report Type: Spontaneous
  Country: JP (occurrence: JP)
  Receive Date: 20250124
  Receipt Date: 20250422
  Transmission Date: 20250717
  Serious: Yes (Other)
  Sender: JOHNSON AND JOHNSON
  Company Number: JP-JNJFOC-20250167902

PATIENT
  Age: 69 Year
  Sex: Female
  Weight: 53.0 kg

DRUGS (2)
  1. TRABECTEDIN [Suspect]
     Active Substance: TRABECTEDIN
     Indication: Uterine leiomyosarcoma
     Route: 041
     Dates: start: 20191010
  2. TRABECTEDIN [Suspect]
     Active Substance: TRABECTEDIN
     Indication: Female reproductive neoplasm
     Route: 041
     Dates: start: 20241114, end: 20241212

REACTIONS (4)
  - Pneumonia [Recovering/Resolving]
  - Febrile neutropenia [Recovered/Resolved]
  - Pneumonia bacterial [Recovering/Resolving]
  - Neutrophil count decreased [Recovering/Resolving]

NARRATIVE: CASE EVENT DATE: 20250101
